FAERS Safety Report 20195847 (Version 3)
Quarter: 2022Q1

REPORT INFORMATION
  Report Type: Spontaneous
  Country: US (occurrence: US)
  Receive Date: 20211216
  Receipt Date: 20220117
  Transmission Date: 20220424
  Serious: Yes (Other)
  Sender: FDA-Public Use
  Company Number: US-ALLERGAN-2142428US

PATIENT
  Sex: Male

DRUGS (4)
  1. BOTOX [Suspect]
     Active Substance: ONABOTULINUMTOXINA
     Indication: Muscle spasticity
     Dosage: 800 UNITS, SINGLE
     Dates: start: 20211118, end: 20211118
  2. BOTOX [Suspect]
     Active Substance: ONABOTULINUMTOXINA
     Dosage: 740 UNITS, SINGLE
     Dates: start: 20210826, end: 20210826
  3. PROZAC [Concomitant]
     Active Substance: FLUOXETINE HYDROCHLORIDE
     Dosage: 20 MG
  4. Blivid [Concomitant]
     Indication: Chemotherapy
     Dosage: 400 MG

REACTIONS (4)
  - Fall [Not Recovered/Not Resolved]
  - Blister [Unknown]
  - Muscular weakness [Unknown]
  - Therapeutic response decreased [Unknown]
